FAERS Safety Report 22810738 (Version 6)
Quarter: 2024Q1

REPORT INFORMATION
  Report Type: Spontaneous
  Country: CA (occurrence: CA)
  Receive Date: 20230810
  Receipt Date: 20240130
  Transmission Date: 20240410
  Serious: Yes (Hospitalization, Other)
  Sender: FDA-Public Use
  Company Number: CA-PFIZER INC-202300222608

PATIENT
  Age: 60 Year
  Sex: Female
  Weight: 79.819 kg

DRUGS (21)
  1. RUXIENCE [Suspect]
     Active Substance: RITUXIMAB-PVVR
     Indication: Scleritis
     Dosage: 1000 MG ,DAY 1 AND DAY 15 (ON DAY 1) EVERY 6 MONTH
     Route: 042
     Dates: start: 20230718
  2. RUXIENCE [Suspect]
     Active Substance: RITUXIMAB-PVVR
     Dosage: 1000 MG ,DAY 1 AND DAY 15,(EVERY 6 MOMTH)
     Route: 042
     Dates: start: 20230802
  3. RUXIENCE [Suspect]
     Active Substance: RITUXIMAB-PVVR
     Dosage: 1000 MG ,6 WEEKS AND 3 DAY AFTER LAST INFUSION
     Route: 042
     Dates: start: 20230901
  4. RUXIENCE [Suspect]
     Active Substance: RITUXIMAB-PVVR
     Dosage: 1000 MG, EVERY 6 MONTH,DAY 1 AND DAY 15(DAY 1 RETREATMENT)
     Route: 042
     Dates: start: 20240124
  5. ACETAMINOPHEN [Concomitant]
     Active Substance: ACETAMINOPHEN
     Indication: Premedication
     Dosage: UNK
     Dates: start: 20230718, end: 20230718
  6. ACETAMINOPHEN [Concomitant]
     Active Substance: ACETAMINOPHEN
     Dosage: 1000 MG
     Dates: start: 20230901, end: 20230901
  7. ACETAMINOPHEN [Concomitant]
     Active Substance: ACETAMINOPHEN
     Dosage: UNK
     Dates: start: 20240124, end: 20240124
  8. BENADRYL [Concomitant]
     Active Substance: DIPHENHYDRAMINE HYDROCHLORIDE
     Indication: Premedication
     Dosage: UNK
     Dates: start: 20230510, end: 20230510
  9. BENADRYL [Concomitant]
     Active Substance: DIPHENHYDRAMINE HYDROCHLORIDE
     Dosage: UNK
     Dates: start: 20240124, end: 20240124
  10. CORTISONE [Concomitant]
     Active Substance: CORTISONE
     Indication: Osteoarthritis
     Dosage: 1 DF, EVERY 3 MONTHS
  11. CORTISONE [Concomitant]
     Active Substance: CORTISONE
     Indication: Premedication
     Dosage: UNK
     Dates: start: 20230510, end: 20230510
  12. CORTISONE [Concomitant]
     Active Substance: CORTISONE
     Dosage: EYES EVERY 2 WEEKS IN BOTH EYES
  13. CORTISONE [Concomitant]
     Active Substance: CORTISONE
     Dosage: 1 DF
  14. DIPHENHYDRAMINE [Concomitant]
     Active Substance: DIPHENHYDRAMINE
     Indication: Premedication
     Dosage: UNK
     Dates: start: 20230718, end: 20230718
  15. DIPHENHYDRAMINE [Concomitant]
     Active Substance: DIPHENHYDRAMINE
     Dosage: 50 MG
     Dates: start: 20230901, end: 20230901
  16. INSULIN NOS [Concomitant]
     Active Substance: INSULIN NOS
     Indication: Diabetes mellitus
     Dosage: UNK
  17. METHYLPREDNISOLONE [Concomitant]
     Active Substance: METHYLPREDNISOLONE
     Indication: Premedication
     Dosage: UNK
     Dates: start: 20230718, end: 20230718
  18. METHYLPREDNISOLONE [Concomitant]
     Active Substance: METHYLPREDNISOLONE
     Dosage: 100 MG
     Dates: start: 20230901, end: 20230901
  19. MIDODRINE [Concomitant]
     Active Substance: MIDODRINE
     Dosage: UNK
  20. PREDNISONE [Concomitant]
     Active Substance: PREDNISONE
     Dosage: UNK, HIGH DOSES,TAKEN OVER A PROLONGED PERIOD OF TIME
  21. SOLU-MEDROL [Concomitant]
     Active Substance: METHYLPREDNISOLONE SODIUM SUCCINATE
     Indication: Premedication
     Dosage: UNK
     Dates: start: 20240124, end: 20240124

REACTIONS (10)
  - Tachycardia [Recovered/Resolved]
  - Heart rate increased [Unknown]
  - Heart rate abnormal [Unknown]
  - Blood pressure fluctuation [Unknown]
  - Fungal infection [Not Recovered/Not Resolved]
  - Nausea [Not Recovered/Not Resolved]
  - Dizziness [Not Recovered/Not Resolved]
  - Illness [Not Recovered/Not Resolved]
  - Headache [Recovered/Resolved]
  - Off label use [Unknown]

NARRATIVE: CASE EVENT DATE: 20230101
